FAERS Safety Report 17846147 (Version 2)
Quarter: 2020Q2

REPORT INFORMATION
  Report Type: Spontaneous
  Country: DE (occurrence: DE)
  Receive Date: 20200601
  Receipt Date: 20200617
  Transmission Date: 20200714
  Serious: Yes (Other)
  Sender: FDA-Public Use
  Company Number: DE-REGENERON PHARMACEUTICALS, INC.-2020-40235

PATIENT

DRUGS (2)
  1. EYLEA [Suspect]
     Active Substance: AFLIBERCEPT
     Indication: NEOVASCULAR AGE-RELATED MACULAR DEGENERATION
     Dosage: UNK
     Dates: start: 20200512
  2. EYLEA [Suspect]
     Active Substance: AFLIBERCEPT
     Dosage: TOTAL NUMBER OF DOSES PRIOR TO EVENT 37, LEFT EYE

REACTIONS (2)
  - Blindness unilateral [Unknown]
  - Endophthalmitis [Recovered/Resolved with Sequelae]

NARRATIVE: CASE EVENT DATE: 20200514
